FAERS Safety Report 8447887-3 (Version None)
Quarter: 2012Q2

REPORT INFORMATION
  Report Type: 
  Country: None (occurrence: None)
  Receive Date: 20120619
  Receipt Date: 20120615
  Transmission Date: 20120825
  Serious: Yes (Hospitalization)
  Sender: FDA-Public Use
  Company Number: US-TEVA-343312USA

PATIENT
  Sex: Female

DRUGS (1)
  1. CYCLOSPORINE [Suspect]
     Route: 048

REACTIONS (3)
  - NAUSEA [None]
  - ACUTE PULMONARY OEDEMA [None]
  - BLOOD URINE PRESENT [None]
